FAERS Safety Report 12725050 (Version 2)
Quarter: 2016Q3

REPORT INFORMATION
  Report Type: Spontaneous
  Country: US (occurrence: US)
  Receive Date: 20160908
  Receipt Date: 20160921
  Transmission Date: 20161109
  Serious: No
  Sender: FDA-Public Use
  Company Number: US-ACTELION-A-US2016-141815

PATIENT
  Age: 78 Year
  Sex: Male

DRUGS (1)
  1. VALCHLOR [Suspect]
     Active Substance: MECHLORETHAMINE
     Indication: MYCOSIS FUNGOIDES
     Dosage: UNK, QD
     Route: 061
     Dates: start: 20160720, end: 20160830

REACTIONS (5)
  - Cellulitis [Unknown]
  - Pain [Unknown]
  - Excoriation [Unknown]
  - Dermatitis contact [Unknown]
  - Skin burning sensation [Unknown]
